FAERS Safety Report 8080972-7 (Version None)
Quarter: 2012Q1

REPORT INFORMATION
  Report Type: 
  Country: None (occurrence: None)
  Receive Date: 20120130
  Receipt Date: 20120118
  Transmission Date: 20120608
  Serious: Yes (Other)
  Sender: FDA-Public Use
  Company Number: CH-MERCK-1201USA02573

PATIENT
  Age: 50 Year
  Sex: Male

DRUGS (6)
  1. ISENTRESS [Suspect]
     Indication: HIV INFECTION
     Route: 048
     Dates: start: 20110401
  2. REYATAZ [Suspect]
     Indication: HIV INFECTION
     Route: 048
     Dates: start: 20110401
  3. QUININE [Suspect]
     Indication: MALARIA
     Route: 042
     Dates: start: 20110929, end: 20110930
  4. MARAVIROC [Suspect]
     Indication: HIV INFECTION
     Route: 048
     Dates: start: 20110401
  5. NORVIR [Suspect]
     Indication: HIV INFECTION
     Route: 048
     Dates: start: 20110401
  6. 3TC COMPLEX [Concomitant]
     Indication: HIV INFECTION
     Route: 048
     Dates: start: 20110401

REACTIONS (1)
  - MYALGIA [None]
